FAERS Safety Report 15756273 (Version 1)
Quarter: 2018Q4

REPORT INFORMATION
  Report Type: Spontaneous
  Country: US (occurrence: US)
  Receive Date: 20181222
  Receipt Date: 20181222
  Transmission Date: 20190205
  Serious: No
  Sender: FDA-Public Use
  Company Number: None

PATIENT
  Age: 39 Year
  Sex: Female
  Weight: 67.05 kg

DRUGS (12)
  1. IMURAN [Concomitant]
     Active Substance: AZATHIOPRINE
  2. AMBIEN [Concomitant]
     Active Substance: ZOLPIDEM TARTRATE
  3. TRAMADOL. [Concomitant]
     Active Substance: TRAMADOL
  4. BABY ASPIRIN [Concomitant]
     Active Substance: ASPIRIN
  5. PRIMIDONE. [Concomitant]
     Active Substance: PRIMIDONE
  6. ZANAFLEX [Concomitant]
     Active Substance: TIZANIDINE HYDROCHLORIDE
  7. GAMMUNEX-C IVIG [Concomitant]
  8. COLACE [Concomitant]
     Active Substance: DOCUSATE SODIUM
  9. AIMOVIG [Suspect]
     Active Substance: ERENUMAB-AOOE
     Indication: MIGRAINE
     Dosage: ?          QUANTITY:1 INJECTION(S);OTHER FREQUENCY:ONCE A MONTH;?
     Route: 058
     Dates: start: 20180831, end: 20181102
  10. PRILOSEC [Concomitant]
     Active Substance: OMEPRAZOLE MAGNESIUM
  11. KEPPRA [Concomitant]
     Active Substance: LEVETIRACETAM
  12. TOPAMAX [Concomitant]
     Active Substance: TOPIRAMATE

REACTIONS (4)
  - Vision blurred [None]
  - Tinnitus [None]
  - Head discomfort [None]
  - Visual impairment [None]

NARRATIVE: CASE EVENT DATE: 20180905
